FAERS Safety Report 17693098 (Version 4)
Quarter: 2020Q3

REPORT INFORMATION
  Report Type: Spontaneous
  Country: US (occurrence: US)
  Receive Date: 20200422
  Receipt Date: 20200810
  Transmission Date: 20201102
  Serious: Yes (Other)
  Sender: FDA-Public Use
  Company Number: US-PFIZER INC-2020155116

PATIENT
  Age: 48 Year
  Sex: Female
  Weight: 104.31 kg

DRUGS (5)
  1. XELJANZ [Suspect]
     Active Substance: TOFACITINIB CITRATE
     Indication: RHEUMATOID ARTHRITIS
     Dosage: 5 MG, DAILY
     Route: 048
  2. PREDNISONE. [Concomitant]
     Active Substance: PREDNISONE
     Dosage: UNK
     Dates: start: 2018
  3. XELJANZ [Suspect]
     Active Substance: TOFACITINIB CITRATE
     Dosage: 5 MG, 2X/DAY
     Route: 048
     Dates: start: 20200406
  4. METHOTREXATE. [Concomitant]
     Active Substance: METHOTREXATE
     Dosage: UNK
  5. PLAQUENIL [Concomitant]
     Active Substance: HYDROXYCHLOROQUINE SULFATE
     Dosage: UNK

REACTIONS (16)
  - Rheumatoid arthritis [Unknown]
  - Alopecia [Unknown]
  - Somnolence [Unknown]
  - Blood iron decreased [Unknown]
  - Blood glucose increased [Unknown]
  - Skin lesion [Unknown]
  - Weight decreased [Recovered/Resolved]
  - Cyst [Unknown]
  - Asthenia [Unknown]
  - Renal disorder [Unknown]
  - Chromaturia [Unknown]
  - Cystitis [Recovered/Resolved]
  - Intentional product misuse [Unknown]
  - Diarrhoea [Unknown]
  - Cellulitis [Unknown]
  - Burning sensation [Unknown]

NARRATIVE: CASE EVENT DATE: 2020
